FAERS Safety Report 21817543 (Version 9)
Quarter: 2025Q2

REPORT INFORMATION
  Report Type: Spontaneous
  Country: US (occurrence: US)
  Receive Date: 20230104
  Receipt Date: 20250509
  Transmission Date: 20250716
  Serious: No
  Sender: PFIZER
  Company Number: US-PFIZER INC-PV202300000521

PATIENT
  Age: 82 Year
  Sex: Male
  Weight: 77.11 kg

DRUGS (3)
  1. VYNDAMAX [Suspect]
     Active Substance: TAFAMIDIS
     Indication: Cardiac amyloidosis
  2. VYNDAMAX [Suspect]
     Active Substance: TAFAMIDIS
     Indication: Amyloidosis
     Dosage: 61 MG, ALTERNATE DAY
  3. VYNDAMAX [Suspect]
     Active Substance: TAFAMIDIS
     Dosage: TAKE 1 TABLET BY MOUTH EVERY MORNING
     Route: 048
     Dates: end: 202501

REACTIONS (4)
  - Hypoacusis [Unknown]
  - Hypotonia [Unknown]
  - Back pain [Unknown]
  - Intentional product misuse [Unknown]
